FAERS Safety Report 17685480 (Version 1)
Quarter: 2020Q2

REPORT INFORMATION
  Report Type: Spontaneous
  Country: US (occurrence: US)
  Receive Date: 20200420
  Receipt Date: 20200420
  Transmission Date: 20200714
  Serious: Yes (Death, Life-Threatening)
  Sender: FDA-Public Use
  Company Number: None

PATIENT
  Age: 82 Year
  Sex: Female
  Weight: 67.5 kg

DRUGS (2)
  1. TRAMADOL. [Suspect]
     Active Substance: TRAMADOL
  2. GABAPENTIN. [Suspect]
     Active Substance: GABAPENTIN

REACTIONS (7)
  - Dizziness [None]
  - Productive cough [None]
  - Chronic obstructive pulmonary disease [None]
  - Disorientation [None]
  - Confusional state [None]
  - Somnolence [None]
  - Pneumonia [None]

NARRATIVE: CASE EVENT DATE: 20191002
